FAERS Safety Report 5372065-4 (Version None)
Quarter: 2007Q2

REPORT INFORMATION
  Report Type: 
  Country: None (occurrence: None)
  Receive Date: 20070627
  Receipt Date: 20070615
  Transmission Date: 20071010
  Serious: Yes (Hospitalization)
  Sender: FDA-Public Use
  Company Number: DE-ROCHE-476220

PATIENT
  Age: 33 Year
  Sex: Female
  Weight: 66 kg

DRUGS (2)
  1. PEGASYS [Suspect]
     Route: 058
     Dates: start: 20060721, end: 20061219
  2. COPEGUS [Suspect]
     Route: 048
     Dates: start: 20060721, end: 20061219

REACTIONS (2)
  - CEREBRAL ISCHAEMIA [None]
  - CEREBROVASCULAR ACCIDENT [None]
